FAERS Safety Report 14343564 (Version 1)
Quarter: 2018Q1

REPORT INFORMATION
  Report Type: Spontaneous
  Country: NO (occurrence: NO)
  Receive Date: 20180102
  Receipt Date: 20180102
  Transmission Date: 20180509
  Serious: Yes (Other)
  Sender: FDA-Public Use
  Company Number: NO-PFIZER INC-2017553104

PATIENT
  Age: 33 Year
  Sex: Female

DRUGS (4)
  1. ROCURONIUM BROMIDE. [Suspect]
     Active Substance: ROCURONIUM BROMIDE
     Indication: GENERAL ANAESTHESIA
     Dosage: 50 MG, UNK
     Route: 042
     Dates: start: 20171201, end: 20171201
  2. THIOPENTAL [Suspect]
     Active Substance: THIOPENTAL
     Indication: GENERAL ANAESTHESIA
     Dosage: 500 MG, UNK
     Route: 042
     Dates: start: 20171201, end: 20171201
  3. FENTANYL. [Concomitant]
     Active Substance: FENTANYL
     Indication: GENERAL ANAESTHESIA
     Dosage: 0.2 MG, UNK
     Route: 042
     Dates: start: 20171201, end: 20171201
  4. ALFENTANIL. [Concomitant]
     Active Substance: ALFENTANIL
     Indication: GENERAL ANAESTHESIA
     Dosage: 1 MG, UNK
     Route: 042
     Dates: start: 20171201, end: 20171201

REACTIONS (4)
  - Drug hypersensitivity [Recovered/Resolved]
  - Bronchospasm [Recovered/Resolved]
  - Tachycardia [Recovered/Resolved]
  - Face oedema [Recovered/Resolved]

NARRATIVE: CASE EVENT DATE: 20171201
